FAERS Safety Report 15466357 (Version 7)
Quarter: 2019Q1

REPORT INFORMATION
  Report Type: Report from Study
  Country: US (occurrence: US)
  Receive Date: 20181004
  Receipt Date: 20190213
  Transmission Date: 20190417
  Serious: Yes (Hospitalization, Other)
  Sender: FDA-Public Use
  Company Number: US-ACTELION-A-NJ2018-174702

PATIENT
  Age: 73 Year
  Sex: Female

DRUGS (2)
  1. OPSUMIT [Suspect]
     Active Substance: MACITENTAN
     Indication: PULMONARY ARTERIAL HYPERTENSION
     Dosage: 10 MG, QD
     Route: 048
     Dates: start: 20161012
  2. LASIX [Concomitant]
     Active Substance: FUROSEMIDE

REACTIONS (13)
  - Post procedural complication [Unknown]
  - Fall [Unknown]
  - Pain [Unknown]
  - Hip arthroplasty [Unknown]
  - Osteomyelitis [Unknown]
  - Hospitalisation [Unknown]
  - Fluid retention [Unknown]
  - Femur fracture [Unknown]
  - General physical health deterioration [Unknown]
  - Fracture treatment [Unknown]
  - Joint injury [Not Recovered/Not Resolved]
  - Neuropathy peripheral [Not Recovered/Not Resolved]
  - Hip fracture [Unknown]

NARRATIVE: CASE EVENT DATE: 20181016
